FAERS Safety Report 5598781-7 (Version None)
Quarter: 2008Q1

REPORT INFORMATION
  Report Type: 
  Country: None (occurrence: None)
  Receive Date: 20080122
  Receipt Date: 20080114
  Transmission Date: 20080703
  Serious: Yes (Other)
  Sender: FDA-Public Use
  Company Number: DE-RANBAXY-2008RR-12570

PATIENT

DRUGS (1)
  1. IBUPROFEN TABLETS BP 600MG [Suspect]
     Dosage: 600 MG, TID

REACTIONS (1)
  - PULMONARY OEDEMA [None]
